FAERS Safety Report 9158876 (Version 2)
Quarter: 2013Q4

REPORT INFORMATION
  Report Type: Spontaneous
  Country: GB (occurrence: None)
  Receive Date: 20130311
  Receipt Date: 20131029
  Transmission Date: 20140711
  Serious: Yes (Death)
  Sender: FDA-Public Use
  Company Number: GB-DEXPHARM-20130078

PATIENT
  Age: 71 Year
  Sex: Male

DRUGS (2)
  1. CLOPIDOGREL [Suspect]
  2. OMEPRAZOLE [Suspect]
     Dosage: DOSAGE FORM

REACTIONS (5)
  - Cardiac arrest [None]
  - Coronary artery thrombosis [None]
  - Drug ineffective [None]
  - Drug interaction [None]
  - Drug prescribing error [None]
